FAERS Safety Report 4935911-1 (Version None)
Quarter: 2006Q1

REPORT INFORMATION
  Report Type: 
  Country: None (occurrence: None)
  Receive Date: 20060302
  Receipt Date: 20060217
  Transmission Date: 20060701
  Serious: No
  Sender: FDA-Public Use
  Company Number: 006735

PATIENT
  Age: 26 Year
  Sex: Female
  Weight: 81.6 kg

DRUGS (1)
  1. CLARAVIS [Suspect]
     Indication: HIDRADENITIS
     Dosage: 40 MG, BID, ORAL
     Route: 048
     Dates: start: 20051223, end: 20060217

REACTIONS (2)
  - DEPRESSED MOOD [None]
  - TEARFULNESS [None]
